FAERS Safety Report 15068097 (Version 2)
Quarter: 2018Q2

REPORT INFORMATION
  Report Type: Report from Study
  Country: FR (occurrence: FR)
  Receive Date: 20180626
  Receipt Date: 20180627
  Transmission Date: 20180711
  Serious: Yes (Life-Threatening, Hospitalization, Other)
  Sender: FDA-Public Use
  Company Number: FR-JNJFOC-20180629470

PATIENT
  Age: 17 Year
  Sex: Male
  Weight: 64.3 kg

DRUGS (3)
  1. METHOTREXATE. [Concomitant]
     Active Substance: METHOTREXATE
     Route: 065
  2. REMICADE [Suspect]
     Active Substance: INFLIXIMAB
     Indication: CROHN^S DISEASE
     Route: 042
     Dates: start: 20110304, end: 20130712
  3. HUMIRA [Concomitant]
     Active Substance: ADALIMUMAB
     Route: 065
     Dates: start: 20130712

REACTIONS (4)
  - Large intestine perforation [Recovered/Resolved with Sequelae]
  - Infectious pleural effusion [Recovered/Resolved]
  - Gastrointestinal necrosis [Recovered/Resolved with Sequelae]
  - Peritonitis [Recovered/Resolved]

NARRATIVE: CASE EVENT DATE: 20171015
